FAERS Safety Report 21263256 (Version 2)
Quarter: 2022Q3

REPORT INFORMATION
  Report Type: Report from Study
  Country: DE (occurrence: DE)
  Receive Date: 20220829
  Receipt Date: 20220911
  Transmission Date: 20221027
  Serious: Yes (Hospitalization, Other)
  Sender: FDA-Public Use
  Company Number: DE-BRISTOL-MYERS SQUIBB COMPANY-2022-084952

PATIENT
  Age: 62 Year
  Sex: Male
  Weight: 70 kg

DRUGS (31)
  1. AZACITIDINE [Suspect]
     Active Substance: AZACITIDINE
     Indication: Acute myeloid leukaemia
     Dosage: FOR 7 DAYS WITHIN THE FIRST 9 CALENDAR DAYS OF EACH 28-DAY CYCLE
     Route: 058
     Dates: start: 20220620, end: 20220722
  2. AZACITIDINE [Suspect]
     Active Substance: AZACITIDINE
     Dosage: FOR 7 DAYS WITHIN THE FIRST 9 CALENDAR DAYS OF EACH 28-DAY CYCLE (75 MG/M2,1?IN 1 D)
     Route: 058
     Dates: start: 20220802
  3. LEMZOPARLIMAB [Suspect]
     Active Substance: LEMZOPARLIMAB
     Indication: Acute myeloid leukaemia
     Dosage: ON DAYS 1, 8, 15, AND 22 OF A 28-DAY CYCLE (30 MG/KG,1 IN 1 WK)
     Route: 065
     Dates: start: 20220627, end: 20220718
  4. LEMZOPARLIMAB [Suspect]
     Active Substance: LEMZOPARLIMAB
     Dosage: ON DAYS 1, 8, 15, AND 22 OF A 28-DAY CYCLE (30 MG/KG,1 IN 1 WK)
     Route: 042
     Dates: start: 20220802
  5. VENETOCLAX [Suspect]
     Active Substance: VENETOCLAX
     Indication: Acute myeloid leukaemia
     Dosage: 1 IN 1 D
     Route: 048
     Dates: start: 20220620, end: 20220725
  6. VENETOCLAX [Suspect]
     Active Substance: VENETOCLAX
     Route: 048
     Dates: start: 20220801
  7. TROSPIUM CHLORIDE [Concomitant]
     Active Substance: TROSPIUM CHLORIDE
     Indication: Benign prostatic hyperplasia
     Route: 048
  8. TROSPIUM CHLORIDE [Concomitant]
     Active Substance: TROSPIUM CHLORIDE
     Route: 048
     Dates: start: 2015
  9. VALSARTAN [Concomitant]
     Active Substance: VALSARTAN
     Indication: Hypertension
     Dosage: 1 IN 1 D
     Route: 048
  10. VALSARTAN [Concomitant]
     Active Substance: VALSARTAN
     Route: 048
  11. LYRICA [Concomitant]
     Active Substance: PREGABALIN
     Indication: Post laminectomy syndrome
     Dosage: 2 IN 1 D
     Route: 048
  12. LYRICA [Concomitant]
     Active Substance: PREGABALIN
     Route: 048
  13. AMITRIPTYLINE HYDROCHLORIDE [Concomitant]
     Active Substance: AMITRIPTYLINE HYDROCHLORIDE
     Indication: Post laminectomy syndrome
     Dosage: 1 IN 1 D
     Route: 048
  14. AMITRIPTYLINE HYDROCHLORIDE [Concomitant]
     Active Substance: AMITRIPTYLINE HYDROCHLORIDE
     Route: 048
  15. SYMBICORT [Concomitant]
     Active Substance: BUDESONIDE\FORMOTEROL FUMARATE DIHYDRATE
     Indication: Chronic obstructive pulmonary disease
     Dosage: 2 IN 1 D
     Route: 048
  16. SYMBICORT [Concomitant]
     Active Substance: BUDESONIDE\FORMOTEROL FUMARATE DIHYDRATE
     Dosage: 2 IN 1 D
     Route: 048
  17. POSACONAZOLE [Concomitant]
     Active Substance: POSACONAZOLE
     Indication: Fungal infection
     Dosage: 1 IN 1 D
     Route: 048
  18. POSACONAZOLE [Concomitant]
     Active Substance: POSACONAZOLE
     Indication: Prophylaxis
     Route: 048
  19. ACYCLOVIR [Concomitant]
     Active Substance: ACYCLOVIR
     Indication: Viral infection
     Dosage: 2 IN 1 D
     Route: 048
  20. ACYCLOVIR [Concomitant]
     Active Substance: ACYCLOVIR
     Indication: Prophylaxis
     Route: 048
  21. TAMSULOSIN [Concomitant]
     Active Substance: TAMSULOSIN
     Indication: Urinary retention
     Route: 048
     Dates: start: 20220729
  22. SODIUM PICOSULFATE [Concomitant]
     Active Substance: SODIUM PICOSULFATE
     Indication: Haematoma
     Dosage: 1 IN 1 D
     Route: 048
     Dates: start: 20220816
  23. POTASSIUM CHLORIDE [Concomitant]
     Active Substance: POTASSIUM CHLORIDE
     Indication: Hypokalaemia
     Dosage: 1 IN 1 D
     Route: 048
     Dates: start: 20220819, end: 20220828
  24. ALLOPURINOL SODIUM [Concomitant]
     Active Substance: ALLOPURINOL SODIUM
  25. ALLOPURINOL SODIUM [Concomitant]
     Active Substance: ALLOPURINOL SODIUM
     Indication: Hypertension
     Route: 048
     Dates: start: 2017
  26. CELEBREX [Concomitant]
     Active Substance: CELECOXIB
     Indication: Post laminectomy syndrome
     Route: 048
     Dates: start: 20220607
  27. SULFAMETHOXAZOLE\TRIMETHOPRIM [Concomitant]
     Active Substance: SULFAMETHOXAZOLE\TRIMETHOPRIM
     Indication: Infection prophylaxis
     Dosage: 3 IN 1 D
     Route: 048
     Dates: start: 20220704
  28. ESPUMISAN EMULSION [Concomitant]
     Indication: Haematoma
     Route: 048
     Dates: start: 20220816
  29. HYDROMORPHON RETARD [Concomitant]
     Indication: Haematoma
     Route: 048
     Dates: start: 20220818
  30. PLATELETS [Concomitant]
     Active Substance: HUMAN PLATELET, ALLOGENIC
     Indication: Neutropenia
     Route: 048
     Dates: start: 20220607, end: 20220803
  31. HUMAN RED BLOOD CELL [Concomitant]
     Active Substance: HUMAN RED BLOOD CELL
     Indication: Anaemia
     Route: 048
     Dates: start: 20220608, end: 20220731

REACTIONS (2)
  - Pseudomonal sepsis [Recovered/Resolved]
  - Wound dehiscence [Recovered/Resolved]

NARRATIVE: CASE EVENT DATE: 20220725
